FAERS Safety Report 7537124-6 (Version None)
Quarter: 2011Q2

REPORT INFORMATION
  Report Type: 
  Country: None (occurrence: None)
  Receive Date: 20110609
  Receipt Date: 20110602
  Transmission Date: 20111010
  Serious: Yes (Hospitalization)
  Sender: FDA-Public Use
  Company Number: PHHY2011US49350

PATIENT
  Age: 24 Year
  Sex: Female
  Weight: 51.247 kg

DRUGS (1)
  1. TOBI [Suspect]
     Dosage: 300 MG, QD, 28 DAYS ON 28 DAYS OFF
     Dates: start: 20110413

REACTIONS (3)
  - EAR INFECTION [None]
  - BRONCHITIS [None]
  - UPPER RESPIRATORY TRACT INFECTION [None]
